FAERS Safety Report 6576010-5 (Version None)
Quarter: 2010Q1

REPORT INFORMATION
  Report Type: 
  Country: None (occurrence: None)
  Receive Date: 20100209
  Receipt Date: 20100127
  Transmission Date: 20100710
  Serious: Yes (Hospitalization)
  Sender: FDA-Public Use
  Company Number: PHHY2010JP03897

PATIENT
  Sex: Male
  Weight: 61 kg

DRUGS (2)
  1. GLEEVEC [Suspect]
     Indication: GASTROINTESTINAL STROMAL TUMOUR
     Dosage: 400 MG/DAY
     Route: 048
     Dates: start: 20080401, end: 20080701
  2. GLEEVEC [Suspect]
     Dosage: 300 MG/DAY
     Route: 048
     Dates: start: 20080702

REACTIONS (8)
  - BLADDER NEOPLASM SURGERY [None]
  - BLADDER TRANSITIONAL CELL CARCINOMA [None]
  - DECREASED APPETITE [None]
  - DIZZINESS [None]
  - HAEMATURIA [None]
  - HAEMOGLOBIN DECREASED [None]
  - MALAISE [None]
  - RED BLOOD CELL COUNT DECREASED [None]
